FAERS Safety Report 24088490 (Version 1)
Quarter: 2024Q3

REPORT INFORMATION
  Report Type: Spontaneous
  Country: IT (occurrence: IT)
  Receive Date: 20240715
  Receipt Date: 20240715
  Transmission Date: 20241016
  Serious: Yes (Other)
  Sender: TEVA
  Company Number: None

PATIENT
  Age: 52 Year
  Sex: Female

DRUGS (1)
  1. NEOTIGASON [Suspect]
     Active Substance: ACITRETIN
     Indication: Psoriasis
     Route: 048
     Dates: start: 20240320, end: 20240618

REACTIONS (3)
  - Psoriasis [Recovered/Resolved]
  - Drug ineffective [Recovered/Resolved]
  - Psoriasis area severity index decreased [Recovered/Resolved]

NARRATIVE: CASE EVENT DATE: 20240501
